FAERS Safety Report 7131151-9 (Version None)
Quarter: 2010Q4

REPORT INFORMATION
  Report Type: 
  Country: None (occurrence: None)
  Receive Date: 20101201
  Receipt Date: 20101119
  Transmission Date: 20110411
  Serious: Yes (Other)
  Sender: FDA-Public Use
  Company Number: JP-PFIZER INC-2010153842

PATIENT
  Age: 89 Year

DRUGS (3)
  1. LYRICA [Suspect]
     Indication: POST HERPETIC NEURALGIA
     Dosage: 25 MG, 2X/DAY
     Route: 048
     Dates: start: 20100910, end: 20100923
  2. LYRICA [Suspect]
     Dosage: 25 MG, UNK
     Route: 048
     Dates: start: 20100908, end: 20100909
  3. LYRICA [Suspect]
     Dosage: UNK
     Route: 048
     Dates: start: 20100924

REACTIONS (1)
  - FALL [None]
